FAERS Safety Report 15790461 (Version 1)
Quarter: 2019Q1

REPORT INFORMATION
  Report Type: Spontaneous
  Country: US (occurrence: US)
  Receive Date: 20190103
  Receipt Date: 20190103
  Transmission Date: 20190417
  Serious: Yes (Hospitalization)
  Sender: FDA-Public Use
  Company Number: None

PATIENT
  Age: 44 Year
  Sex: Female

DRUGS (8)
  1. PROGESTERONE 100 MG [Concomitant]
     Active Substance: PROGESTERONE
     Dates: start: 20181105
  2. CLONAZEPAM 0.5MG [Concomitant]
     Active Substance: CLONAZEPAM
     Dates: start: 20181009
  3. CELLULOSE NF (MICRO CRYSTALLINE) POWDER [Suspect]
     Active Substance: CELLULOSE, MICROCRYSTALLINE
     Indication: AUTOIMMUNE DISORDER
     Route: 048
     Dates: start: 20181211, end: 20181223
  4. ESTRADIOL 0.0375 MG PATCH [Concomitant]
     Active Substance: ESTRADIOL
     Dates: start: 20181211
  5. LEVOTHYROXINE. [Concomitant]
     Active Substance: LEVOTHYROXINE
     Dates: start: 20181112
  6. NALTREXONE HCL POWDER [Suspect]
     Active Substance: NALTREXONE HYDROCHLORIDE
     Indication: AUTOIMMUNE DISORDER
     Route: 048
     Dates: start: 20181211, end: 20181223
  7. LIOTHYRONINE SOD 5MCG [Concomitant]
     Dates: start: 20181112
  8. KEPPRA 250 MG [Concomitant]
     Dates: start: 20181001

REACTIONS (2)
  - Drug intolerance [None]
  - Gastroenteritis [None]

NARRATIVE: CASE EVENT DATE: 20181226
